FAERS Safety Report 23234849 (Version 1)
Quarter: 2023Q4

REPORT INFORMATION
  Report Type: Spontaneous
  Country: US (occurrence: None)
  Receive Date: 20231128
  Receipt Date: 20231128
  Transmission Date: 20240110
  Serious: Yes (Hospitalization)
  Sender: FDA-Public Use
  Company Number: None

PATIENT
  Sex: Female

DRUGS (1)
  1. LENALIDOMIDE [Suspect]
     Active Substance: LENALIDOMIDE
     Indication: Plasma cell myeloma
     Dosage: 5 MG ORAL? FREQUENCY: DAILY FOR 14 DAYS THEN 7 DAYS OFF?
     Route: 048
     Dates: start: 202305

REACTIONS (1)
  - Transient ischaemic attack [None]
